FAERS Safety Report 6062725-4 (Version None)
Quarter: 2009Q1

REPORT INFORMATION
  Report Type: 
  Country: None (occurrence: None)
  Receive Date: 20090202
  Receipt Date: 20090202
  Transmission Date: 20090719
  Serious: No
  Sender: FDA-Public Use
  Company Number: None

PATIENT
  Age: 44 Year
  Sex: Female
  Weight: 67.1324 kg

DRUGS (1)
  1. NAPROXEN [Suspect]
     Indication: JOINT INJURY
     Dosage: 500MG  3X A DAY PO
     Route: 048
     Dates: start: 20090126, end: 20090130

REACTIONS (5)
  - ABDOMINAL DISTENSION [None]
  - CARDIAC FLUTTER [None]
  - DISCOMFORT [None]
  - PALPITATIONS [None]
  - VISION BLURRED [None]
